FAERS Safety Report 8369514-6 (Version None)
Quarter: 2012Q2

REPORT INFORMATION
  Report Type: 
  Country: None (occurrence: None)
  Receive Date: 20120518
  Receipt Date: 20120511
  Transmission Date: 20120825
  Serious: Yes (Life-Threatening, Hospitalization, Congenital Anomaly, Other)
  Sender: FDA-Public Use
  Company Number: US-JNJFOC-20111205496

PATIENT
  Sex: Male

DRUGS (5)
  1. TOPAMAX [Suspect]
     Indication: FOETAL EXPOSURE DURING PREGNANCY
     Route: 064
  2. MULTI-VITAMINS [Concomitant]
     Indication: FOETAL EXPOSURE DURING PREGNANCY
     Route: 064
  3. PRILOSEC [Suspect]
     Indication: FOETAL EXPOSURE DURING PREGNANCY
     Route: 064
  4. TOPAMAX [Suspect]
     Route: 064
  5. ASPIRIN [Suspect]
     Indication: FOETAL EXPOSURE DURING PREGNANCY
     Route: 064

REACTIONS (20)
  - CONDUCTIVE DEAFNESS [None]
  - DISORDER OF ORBIT [None]
  - CLEFT LIP [None]
  - RESPIRATORY DISTRESS [None]
  - ANAL ATRESIA [None]
  - OTITIS MEDIA CHRONIC [None]
  - CLEFT PALATE [None]
  - DYSPHAGIA [None]
  - LOW BIRTH WEIGHT BABY [None]
  - MULTIPLE CONGENITAL ABNORMALITIES [None]
  - SLEEP APNOEA SYNDROME [None]
  - GASTROOESOPHAGEAL REFLUX DISEASE [None]
  - MICROGNATHIA [None]
  - DEVELOPMENTAL DELAY [None]
  - FEEDING DISORDER [None]
  - CONGENITAL CENTRAL NERVOUS SYSTEM ANOMALY [None]
  - TRISOMY 14 [None]
  - CRANIOSYNOSTOSIS [None]
  - HYPOSPADIAS [None]
  - EUSTACHIAN TUBE DYSFUNCTION [None]
